FAERS Safety Report 9514682 (Version 1)
Quarter: 2013Q1

REPORT INFORMATION
  Report Type: Spontaneous
  Country: US (occurrence: None)
  Receive Date: 20130305
  Receipt Date: 20130305
  Transmission Date: 20140127
  Serious: Yes (Hospitalization)
  Sender: FDA-Public Use
  Company Number: 163-21880-12112424

PATIENT
  Sex: 0

DRUGS (1)
  1. REVLIMID [Suspect]
     Dosage: 15 MG,  M,W,F,  PO
     Route: 048

REACTIONS (1)
  - Cerebrovascular accident [None]
